FAERS Safety Report 8610840-0 (Version None)
Quarter: 2012Q3

REPORT INFORMATION
  Report Type: 
  Country: None (occurrence: None)
  Receive Date: 20120808
  Receipt Date: 20120725
  Transmission Date: 20120928
  Serious: Yes (Death, Hospitalization, Other)
  Sender: FDA-Public Use
  Company Number: 2012MA009126

PATIENT
  Age: 55 Year
  Sex: Female

DRUGS (14)
  1. ALPRAZOLAM [Suspect]
     Dosage: PO
     Route: 048
  2. LISINOPRIL [Suspect]
     Dosage: PO
     Route: 048
  3. MONTELUKAST [Suspect]
     Dosage: PO
     Route: 048
  4. COCAINE [Suspect]
     Dosage: PO
     Route: 048
  5. GEMFIBROZIL [Concomitant]
  6. NAPROXEN [Suspect]
     Dosage: PO
     Route: 048
  7. HYDROCODONE [Suspect]
     Dosage: PO
     Route: 048
  8. PRAVASTATIN [Suspect]
     Dosage: PO
     Route: 048
  9. KADIAN [Suspect]
     Dosage: PO
     Route: 048
  10. CIMETIDINE HYDROCHLORIDE [Suspect]
     Dosage: PO
     Route: 048
  11. OXYCODONE HCL [Suspect]
     Dosage: PO
     Route: 048
  12. GABAPENTIN [Suspect]
     Dosage: PO
     Route: 048
  13. CYCLOBENZAPRINE [Suspect]
     Dosage: PO
     Route: 048
  14. EZETIMIBE/SIMVASTATIN [Suspect]
     Dosage: PO
     Route: 048

REACTIONS (2)
  - HYPOTENSION [None]
  - MULTIPLE DRUG OVERDOSE [None]
